FAERS Safety Report 17130878 (Version 1)
Quarter: 2019Q4

REPORT INFORMATION
  Report Type: Spontaneous
  Country: US (occurrence: US)
  Receive Date: 20191209
  Receipt Date: 20191209
  Transmission Date: 20200122
  Serious: No
  Sender: FDA-Public Use
  Company Number: US-ROCHE-2357334

PATIENT
  Age: 19 Year
  Sex: Male

DRUGS (3)
  1. PHYSOSTIGMINE [Concomitant]
     Active Substance: PHYSOSTIGMINE
     Route: 042
  2. VALIUM [Suspect]
     Active Substance: DIAZEPAM
     Indication: MUSCLE SPASMS
     Route: 048
  3. DARVON-N [Suspect]
     Active Substance: PROPOXYPHENE NAPSYLATE
     Indication: PAIN
     Route: 065

REACTIONS (2)
  - Overdose [Unknown]
  - Depression [Recovering/Resolving]
